FAERS Safety Report 7913995-6 (Version None)
Quarter: 2011Q4

REPORT INFORMATION
  Report Type: 
  Country: None (occurrence: None)
  Receive Date: 20111115
  Receipt Date: 20111107
  Transmission Date: 20120403
  Serious: Yes (Hospitalization)
  Sender: FDA-Public Use
  Company Number: TR-ROXANE LABORATORIES, INC.-2011-RO-01598RO

PATIENT
  Age: 20 Year
  Sex: Female

DRUGS (1)
  1. NAPROXEN [Suspect]
     Indication: DYSMENORRHOEA

REACTIONS (3)
  - KOUNIS SYNDROME [None]
  - ASTHMA [None]
  - DRUG HYPERSENSITIVITY [None]
